FAERS Safety Report 8340387 (Version 6)
Quarter: 2015Q2

REPORT INFORMATION
  Report Type: Report from Study
  Country: DE (occurrence: DE)
  Receive Date: 20120117
  Receipt Date: 20150402
  Transmission Date: 20150821
  Serious: Yes (Hospitalization)
  Sender: FDA-Public Use
  Company Number: PHHO2012DE001019

PATIENT
  Age: 23 Year
  Sex: Female
  Weight: 94 kg

DRUGS (9)
  1. MELPERONE [Concomitant]
     Active Substance: MELPERONE
     Indication: AFFECTIVE DISORDER
     Dosage: 50 MG, BID
     Route: 048
     Dates: start: 20110401
  2. IMPLANON [Concomitant]
     Active Substance: ETONOGESTREL
     Indication: CONTRACEPTION
     Dosage: UNK
     Dates: start: 20110110
  3. HCT [Concomitant]
     Active Substance: HYDROCHLOROTHIAZIDE
     Indication: HYPERTENSION
     Dosage: 25 MG, QD
     Route: 048
     Dates: start: 201003, end: 20111226
  4. EVEROLIMUS [Suspect]
     Active Substance: EVEROLIMUS
     Indication: TUBEROUS SCLEROSIS
     Dosage: 10 MG, QD (EXTENSION PHASE)
     Route: 048
     Dates: start: 20111015
  5. LAMOTRIGIN [Concomitant]
     Active Substance: LAMOTRIGINE
     Indication: SEIZURE
     Dosage: 200-0-100 MG, QD
     Route: 048
  6. LEPTILAN [Concomitant]
     Indication: SEIZURE
     Dosage: 900+1200 MG, QD
     Route: 048
     Dates: start: 2007
  7. PLACEBO [Suspect]
     Active Substance: UNSPECIFIED INGREDIENT
     Indication: TUBEROUS SCLEROSIS
     Dosage: CORE BLINDED PHASE
     Route: 048
     Dates: start: 20100520, end: 20110913
  8. L-THYROXINE [Concomitant]
     Active Substance: LEVOTHYROXINE
     Indication: HYPOTHYROIDISM
     Dosage: 25 MG, QD
     Route: 048
     Dates: start: 200906
  9. SABRIL [Concomitant]
     Active Substance: VIGABATRIN
     Indication: SEIZURE
     Dosage: 1500 MG, BID
     Route: 048
     Dates: start: 2007

REACTIONS (1)
  - Vertigo positional [Recovered/Resolved]

NARRATIVE: CASE EVENT DATE: 20111227
